FAERS Safety Report 25255562 (Version 1)
Quarter: 2025Q2

REPORT INFORMATION
  Report Type: Spontaneous
  Country: US (occurrence: US)
  Receive Date: 20250430
  Receipt Date: 20250430
  Transmission Date: 20250716
  Serious: Yes (Other)
  Sender: CALLIDITAS THERAPEUTICS AB
  Company Number: US-Calliditas-2025CAL00729

PATIENT
  Age: 73 Year
  Sex: Male

DRUGS (1)
  1. TARPEYO [Suspect]
     Active Substance: BUDESONIDE
     Indication: IgA nephropathy
     Route: 048
     Dates: start: 20250218, end: 20250421

REACTIONS (3)
  - Hip fracture [Recovering/Resolving]
  - Product dose omission issue [Recovering/Resolving]
  - Unevaluable event [Unknown]
